FAERS Safety Report 7578912-X (Version None)
Quarter: 2011Q2

REPORT INFORMATION
  Report Type: 
  Country: None (occurrence: None)
  Receive Date: 20110628
  Receipt Date: 20110621
  Transmission Date: 20111010
  Serious: Yes (Death, Hospitalization)
  Sender: FDA-Public Use
  Company Number: JP-CELGENEUS-087-21880-10121758

PATIENT
  Sex: Female

DRUGS (29)
  1. REVLIMID [Suspect]
     Dosage: 10 MILLIGRAM
     Route: 048
     Dates: start: 20100916, end: 20101005
  2. REVLIMID [Suspect]
     Dosage: 10 MILLIGRAM
     Route: 048
     Dates: start: 20101014, end: 20101020
  3. REVLIMID [Suspect]
     Dosage: 10 MILLIGRAM
     Route: 048
     Dates: start: 20101220, end: 20110104
  4. ZOLPIDEM [Concomitant]
     Indication: MULTIPLE MYELOMA
     Dosage: 5 MILLIGRAM
     Route: 048
     Dates: end: 20110113
  5. FUROSEMIDE [Concomitant]
     Indication: MULTIPLE MYELOMA
     Dosage: 20 MILLIGRAM
     Route: 048
     Dates: end: 20110113
  6. PROCTOSEDYL [Concomitant]
     Dosage: 2 GRAM
     Route: 061
     Dates: start: 20101203, end: 20101212
  7. REVLIMID [Suspect]
     Indication: MULTIPLE MYELOMA
     Dosage: 10 MILLIGRAM
     Route: 048
     Dates: start: 20100809
  8. DECADRON [Suspect]
     Indication: HERPES ZOSTER
     Dosage: 8 MILLIGRAM
     Route: 041
     Dates: start: 20101014, end: 20101015
  9. CONFATANIN [Concomitant]
     Indication: MULTIPLE MYELOMA
     Dosage: 60 MILLIGRAM
     Route: 048
     Dates: end: 20110113
  10. ENEMA [Concomitant]
     Route: 065
  11. REVLIMID [Suspect]
     Dosage: 10 MILLIGRAM
     Route: 048
     Dates: start: 20101122, end: 20101126
  12. ERYTHROMYCIN [Concomitant]
     Indication: MULTIPLE MYELOMA
     Dosage: 600 MILLIGRAM
     Route: 048
     Dates: end: 20110113
  13. PREDNISOLONE [Concomitant]
     Indication: MULTIPLE MYELOMA
     Dosage: 5 MILLIGRAM
     Route: 048
     Dates: end: 20110113
  14. ITRACONAZOLE [Concomitant]
     Indication: PROPHYLAXIS
     Dosage: 20 MILLIGRAM
     Route: 048
     Dates: start: 20101205, end: 20101211
  15. FENTANYL [Concomitant]
     Indication: MULTIPLE MYELOMA
     Dosage: 4.2 MG/3 DAYS
     Route: 061
     Dates: end: 20110113
  16. MECOBALAMIN [Concomitant]
     Dosage: 1.5 GRAM
     Route: 048
     Dates: end: 20110113
  17. REVLIMID [Suspect]
     Dosage: 5 MILLIGRAM
     Route: 048
     Dates: start: 20101127, end: 20101212
  18. DECADRON [Suspect]
     Indication: MULTIPLE MYELOMA
     Dosage: 8 MILLIGRAM
     Route: 041
     Dates: start: 20100916, end: 20101001
  19. CABAGIN-U [Concomitant]
     Indication: MULTIPLE MYELOMA
     Dosage: 75 MILLIGRAM
     Route: 048
     Dates: end: 20110113
  20. MIYA BM [Concomitant]
     Indication: MULTIPLE MYELOMA
     Dosage: 3 GRAM
     Route: 048
     Dates: end: 20110113
  21. ALPRAZOLAM [Concomitant]
     Indication: MULTIPLE MYELOMA
     Dosage: .4 MILLIGRAM
     Route: 048
     Dates: end: 20110113
  22. ETIZOLAM [Concomitant]
     Indication: MULTIPLE MYELOMA
     Dosage: .5 MILLIGRAM
     Route: 048
     Dates: end: 20110113
  23. ASPARA POTASSIUM [Concomitant]
     Indication: PROPHYLAXIS
     Dosage: 300 MILLIGRAM
     Route: 048
     Dates: end: 20110113
  24. REVLIMID [Suspect]
     Dosage: 5 MILLIGRAM
     Route: 048
     Dates: start: 20101127, end: 20101212
  25. DECADRON [Suspect]
     Dosage: 1 MILLIGRAM
     Route: 048
     Dates: start: 20101122, end: 20101123
  26. ETODOLAC [Concomitant]
     Indication: MULTIPLE MYELOMA
     Dosage: 400 MILLIGRAM
     Route: 048
     Dates: end: 20110113
  27. LUPRAC [Concomitant]
     Indication: MULTIPLE MYELOMA
     Dosage: 4 MILLIGRAM
     Route: 048
     Dates: end: 20110113
  28. LANSOPRAZOLE [Concomitant]
     Indication: PROPHYLAXIS
     Dosage: 15 MILLIGRAM
     Route: 048
     Dates: end: 20110113
  29. GABAPENTIN [Concomitant]
     Indication: MULTIPLE MYELOMA
     Dosage: 600 MILLIGRAM
     Route: 048
     Dates: end: 20110113

REACTIONS (10)
  - DIVERTICULITIS [None]
  - LEUKOPENIA [None]
  - HEADACHE [None]
  - NAUSEA [None]
  - HERPES ZOSTER [None]
  - MULTIPLE MYELOMA [None]
  - PNEUMONIA [None]
  - THROMBOCYTOPENIA [None]
  - C-REACTIVE PROTEIN INCREASED [None]
  - HYPOAESTHESIA [None]
